FAERS Safety Report 22125312 (Version 17)
Quarter: 2024Q3

REPORT INFORMATION
  Report Type: Spontaneous
  Country: US (occurrence: US)
  Receive Date: 20230322
  Receipt Date: 20240801
  Transmission Date: 20241017
  Serious: No
  Sender: PFIZER
  Company Number: US-PFIZER INC-PV202300053314

PATIENT
  Age: 68 Year
  Sex: Female
  Weight: 68.04 kg

DRUGS (4)
  1. BRAFTOVI [Suspect]
     Active Substance: ENCORAFENIB
     Indication: Metastatic malignant melanoma
     Dosage: SIX 75MG CAPSULES, THIS DOSE/SCHEDULE IS BASED ON PATIENT^S BETTER TOLERANCE
     Route: 048
     Dates: start: 202205
  2. MEKTOVI [Suspect]
     Active Substance: BINIMETINIB
     Indication: Metastatic malignant melanoma
     Dosage: SIX 15MG PILLS
     Route: 048
     Dates: start: 202205
  3. PREDNISONE [Concomitant]
     Active Substance: PREDNISONE
     Indication: Rheumatoid arthritis
     Dosage: 5 MG, 1X/DAY
  4. PREDNISONE [Concomitant]
     Active Substance: PREDNISONE
     Dosage: BUT IF SHE HAS FLARE UP OF RHEUMATOID ARTHRITIS WILL TAKE TWICE A DAY

REACTIONS (4)
  - Illness [Unknown]
  - Crying [Unknown]
  - Malaise [Unknown]
  - Off label use [Unknown]
